FAERS Safety Report 14803061 (Version 2)
Quarter: 2018Q2

REPORT INFORMATION
  Report Type: Report from Study
  Country: None (occurrence: US)
  Receive Date: 20180424
  Receipt Date: 20180427
  Transmission Date: 20180711
  Serious: Yes (Death)
  Sender: FDA-Public Use
  Company Number: US-ABBVIE-18K-163-2332779-00

PATIENT
  Age: 63 Year
  Sex: Male

DRUGS (1)
  1. HUMIRA [Suspect]
     Active Substance: ADALIMUMAB
     Indication: CROHN^S DISEASE
     Route: 058
     Dates: start: 201103, end: 201712

REACTIONS (3)
  - Oropharyngeal cancer [Fatal]
  - Respiratory distress [Fatal]
  - Pneumonia [Fatal]

NARRATIVE: CASE EVENT DATE: 201712
